FAERS Safety Report 6736550-2 (Version None)
Quarter: 2010Q2

REPORT INFORMATION
  Report Type: 
  Country: None (occurrence: None)
  Receive Date: 20100519
  Receipt Date: 20100504
  Transmission Date: 20101027
  Serious: Yes (Hospitalization)
  Sender: FDA-Public Use
  Company Number: 1000013819

PATIENT
  Age: 77 Year
  Sex: Female

DRUGS (9)
  1. ESCITALOPRAM [Suspect]
     Indication: ANXIETY
     Dosage: 1 DOSAGE FORMS (1 DOSAGE FORMS, 1 IN 1 D), ORAL
     Route: 048
     Dates: start: 20091201, end: 20100103
  2. FLUDEX (TABLETS) [Suspect]
     Indication: HYPERTENSION
     Dosage: 1.5 MG (1.5 MG, 1 IN 1 D), ORAL
     Route: 048
     Dates: start: 20091226, end: 20100103
  3. MONO TILDIEM (CAPSULES) [Concomitant]
  4. OLMETEC (TABLETS) [Concomitant]
  5. AZOPT (EYE DROPS) [Concomitant]
  6. XALATAN [Concomitant]
  7. LEXOMIL (TABLETS) [Concomitant]
  8. INEXIUM (TABLETS) [Concomitant]
  9. CARDIOCALM (TABLETS) [Concomitant]

REACTIONS (6)
  - CONFUSIONAL STATE [None]
  - DEPRESSION [None]
  - HYPOKALAEMIA [None]
  - HYPONATRAEMIA [None]
  - VASCULITIS CEREBRAL [None]
  - VOMITING [None]
